FAERS Safety Report 24338640 (Version 1)
Quarter: 2024Q3

REPORT INFORMATION
  Report Type: Spontaneous
  Country: TR (occurrence: TR)
  Receive Date: 20240919
  Receipt Date: 20240919
  Transmission Date: 20241017
  Serious: Yes (Death)
  Sender: STRIDES
  Company Number: TR-STRIDES ARCOLAB LIMITED-2024SP012016

PATIENT
  Age: 63 Year
  Sex: Female

DRUGS (3)
  1. PREDNISOLONE [Suspect]
     Active Substance: PREDNISOLONE
     Indication: Idiopathic interstitial pneumonia
     Dosage: UNK
     Route: 065
  2. AZATHIOPRINE [Suspect]
     Active Substance: AZATHIOPRINE
     Indication: Idiopathic interstitial pneumonia
     Dosage: UNK
     Route: 065
  3. RITUXIMAB [Suspect]
     Active Substance: RITUXIMAB
     Indication: Idiopathic interstitial pneumonia
     Dosage: UNK
     Route: 065

REACTIONS (3)
  - Respiratory failure [Fatal]
  - Infection [Fatal]
  - Off label use [Unknown]
